FAERS Safety Report 15553990 (Version 1)
Quarter: 2018Q4

REPORT INFORMATION
  Report Type: Report from Study
  Country: US (occurrence: US)
  Receive Date: 20181026
  Receipt Date: 20181026
  Transmission Date: 20190205
  Serious: Yes (Hospitalization)
  Sender: FDA-Public Use
  Company Number: US-ROCHE-2205555

PATIENT
  Age: 64 Year
  Sex: Female

DRUGS (18)
  1. METHOTREXATE SODIUM. [Suspect]
     Active Substance: METHOTREXATE SODIUM
     Dosage: REGIMEN M: MAINTENANCE UP TO 3 YEARS
     Route: 048
  2. RITUXIMAB. [Suspect]
     Active Substance: RITUXIMAB
     Dosage: ON DAY 2 AND 8 OF CYCLES 2 AND 4
     Route: 042
  3. PEGFILGRASTIM [Suspect]
     Active Substance: PEGFILGRASTIM
     Indication: ACUTE LYMPHOCYTIC LEUKAEMIA
     Dosage: CYCLIC(REGIMEN A: ON DAY4 UNTIL RECOVERY OF GRANULOCYTE COUNT)
     Route: 058
  4. PEGFILGRASTIM [Suspect]
     Active Substance: PEGFILGRASTIM
     Dosage: ON DAY 4 UNTIL RECOVERY OF GRANULOCYTE COUNT
     Route: 058
  5. INOTUZUMAB OZOGAMICIN [Suspect]
     Active Substance: INOTUZUMAB OZOGAMICIN
     Indication: ACUTE LYMPHOCYTIC LEUKAEMIA
     Dosage: CYCLIC REGIMENT A: OVER 1 HOUR ON DAY 3?DATE OF LAST DOSE INOTUZUMAB OZOGAMICIN AT EVENT START WAS 2
     Route: 042
     Dates: start: 20180718
  6. INOTUZUMAB OZOGAMICIN [Suspect]
     Active Substance: INOTUZUMAB OZOGAMICIN
     Dosage: ON DAY 2 OR 3 (CYCLES 2 AND 4 ONLY)
     Route: 042
  7. VINCRISTINE SULFATE. [Suspect]
     Active Substance: VINCRISTINE SULFATE
     Dosage: REGIMEN M: MAINTENANCE UP TO 3 YEARS.?FOR 1 YEAR
     Route: 042
  8. MESNA. [Suspect]
     Active Substance: MESNA
     Indication: ACUTE LYMPHOCYTIC LEUKAEMIA
     Dosage: CYCLIC(REGIMENT A: DAILY OVER 24 HOURS FOR 3 DAYS ON DAYS 1-3)
     Route: 042
  9. METHOTREXATE SODIUM. [Suspect]
     Active Substance: METHOTREXATE SODIUM
     Dosage: REGIMEN B: CONTINUOUS INFUSION OVER 22 HOURS ON DAY 1
     Route: 042
  10. CYTARABINE. [Suspect]
     Active Substance: CYTARABINE
     Indication: ACUTE LYMPHOCYTIC LEUKAEMIA
     Dosage: CYCLIC(REGIMENT B: OVER 3 HOURS TWICE A DAYX4 DOSES ON DAYS 2 AND 3)
     Route: 042
  11. CYTARABINE. [Suspect]
     Active Substance: CYTARABINE
     Dosage: 0.5G/M2 OVER 3 HOURS TWICE A DAY X 4 DOSES ON DAYS 2 AND 3
     Route: 042
  12. PREDNISONE. [Suspect]
     Active Substance: PREDNISONE
     Indication: ACUTE LYMPHOCYTIC LEUKAEMIA
     Dosage: REGIMEN M: MAINTENANCE UP TO 3 YEARS. ?DAILY X5 EVERY MONTH FOR 1 YEAR
     Route: 048
  13. RITUXIMAB. [Suspect]
     Active Substance: RITUXIMAB
     Indication: ACUTE LYMPHOCYTIC LEUKAEMIA
     Dosage: 375 MG/M2, CYCLIC[REGIMENT A: ON DAY 2 AND DAY 8 (CYCLES 1 AND 3 ONLY)]
     Route: 042
  14. VINCRISTINE SULFATE. [Suspect]
     Active Substance: VINCRISTINE SULFATE
     Indication: ACUTE LYMPHOCYTIC LEUKAEMIA
     Dosage: CYCLIC(REGIMENT A: DAY 1 AND DAY 8)
     Route: 042
  15. MERCAPTOPURINE. [Suspect]
     Active Substance: MERCAPTOPURINE
     Indication: ACUTE LYMPHOCYTIC LEUKAEMIA
     Dosage: REGIMEN M: MAINTENANCE UP TO 3 YEARS
     Route: 048
  16. METHOTREXATE SODIUM. [Suspect]
     Active Substance: METHOTREXATE SODIUM
     Indication: ACUTE LYMPHOCYTIC LEUKAEMIA
     Dosage: CYCLIC(REGIMENT B: OVER 2HRS ON DAY 1)
     Route: 042
  17. CYCLOPHOSPHAMIDE. [Suspect]
     Active Substance: CYCLOPHOSPHAMIDE
     Indication: ACUTE LYMPHOCYTIC LEUKAEMIA
     Dosage: CYCLIC(REGIMENT A: OVER 3 HOURS TWICE A DAY ON DAYS 1-3)
     Route: 042
  18. DEXAMETHASONE. [Suspect]
     Active Substance: DEXAMETHASONE
     Indication: ACUTE LYMPHOCYTIC LEUKAEMIA
     Dosage: CYCLIC(REGIMENT A: DAILY FOR 4 DAYS ON DAYS 1-4 AND DAYS 11-14)
     Route: 042

REACTIONS (1)
  - Mental status changes [Recovered/Resolved]

NARRATIVE: CASE EVENT DATE: 20180921
